FAERS Safety Report 25544647 (Version 1)
Quarter: 2025Q3

REPORT INFORMATION
  Report Type: Spontaneous
  Country: US (occurrence: US)
  Receive Date: 20250711
  Receipt Date: 20250711
  Transmission Date: 20251021
  Serious: Yes (Other)
  Sender: BRISTOL-MYERS SQUIBB COMPANY
  Company Number: US-BRISTOL-MYERS SQUIBB COMPANY-2025-097807

PATIENT
  Age: 73 Year
  Sex: Male
  Weight: 95.7 kg

DRUGS (1)
  1. POMALYST [Suspect]
     Active Substance: POMALIDOMIDE
     Indication: Plasma cell myeloma
     Dosage: ONCE DAILY FOR 7 DAYS ON, 7 OFF
     Route: 048
     Dates: start: 20250303

REACTIONS (1)
  - Neuropathy peripheral [Unknown]
